FAERS Safety Report 18796772 (Version 2)
Quarter: 2021Q2

REPORT INFORMATION
  Report Type: Spontaneous
  Country: US (occurrence: US)
  Receive Date: 20210128
  Receipt Date: 20210521
  Transmission Date: 20210717
  Serious: No
  Sender: FDA-Public Use
  Company Number: US-GILEAD-2021-0513381

PATIENT
  Sex: Male
  Weight: 79.37 kg

DRUGS (6)
  1. GABAPENTIN. [Concomitant]
     Active Substance: GABAPENTIN
  2. ATRIPLA [Suspect]
     Active Substance: EFAVIRENZ\EMTRICITABINE\TENOFOVIR DISOPROXIL FUMARATE
     Indication: HIV INFECTION
     Dosage: UNK
     Route: 048
     Dates: start: 2011
  3. ATRIPLA [Suspect]
     Active Substance: EFAVIRENZ\EMTRICITABINE\TENOFOVIR DISOPROXIL FUMARATE
     Dosage: UNK
     Route: 048
     Dates: start: 2007, end: 2019
  4. BIKTARVY [Concomitant]
     Active Substance: BICTEGRAVIR SODIUM\EMTRICITABINE\TENOFOVIR ALAFENAMIDE FUMARATE
  5. SUSTIVA [Concomitant]
     Active Substance: EFAVIRENZ
  6. ZOLOFT [Concomitant]
     Active Substance: SERTRALINE HYDROCHLORIDE

REACTIONS (7)
  - Depression [Not Recovered/Not Resolved]
  - Emotional distress [Not Recovered/Not Resolved]
  - Wrist fracture [Not Recovered/Not Resolved]
  - Anhedonia [Not Recovered/Not Resolved]
  - Anxiety [Not Recovered/Not Resolved]
  - Pain [Not Recovered/Not Resolved]
  - Osteopenia [Not Recovered/Not Resolved]
